FAERS Safety Report 20813853 (Version 4)
Quarter: 2023Q1

REPORT INFORMATION
  Report Type: Report from Study
  Country: FR (occurrence: FR)
  Receive Date: 20220511
  Receipt Date: 20230120
  Transmission Date: 20230417
  Serious: Yes (Hospitalization, Disabling)
  Sender: FDA-Public Use
  Company Number: FR-SERVIER-S22004682

PATIENT

DRUGS (5)
  1. PEGASPARGASE [Suspect]
     Active Substance: PEGASPARGASE
     Indication: Acute lymphocytic leukaemia
     Dosage: 1550 IU, D12
     Route: 042
     Dates: start: 20220121, end: 20220222
  2. VINCRISTINE [Suspect]
     Active Substance: VINCRISTINE
     Indication: Acute lymphocytic leukaemia
     Dosage: 1.9 MG, D8, D15, D22, D29
     Route: 042
     Dates: start: 20220117, end: 20220207
  3. DEXAMETHASONE [Suspect]
     Active Substance: DEXAMETHASONE
     Indication: Acute lymphocytic leukaemia
     Dosage: 8 MG, D8-D28
     Route: 042
     Dates: start: 20220118, end: 20220207
  4. METHOTREXATE [Suspect]
     Active Substance: METHOTREXATE
     Indication: Acute lymphocytic leukaemia
     Dosage: 12 MG ON D1, D13, D24
     Route: 037
     Dates: start: 20220117, end: 20220215
  5. PREDNISOLONE [Suspect]
     Active Substance: PREDNISOLONE
     Indication: Acute lymphocytic leukaemia
     Dosage: 75 MG, PER DAY,  D1 TO D8
     Route: 048
     Dates: start: 20220110, end: 20220118

REACTIONS (3)
  - Pancreatitis [Not Recovered/Not Resolved]
  - Clostridium difficile infection [Recovered/Resolved]
  - Enterococcal sepsis [Recovered/Resolved]

NARRATIVE: CASE EVENT DATE: 20220202
